FAERS Safety Report 12078371 (Version 1)
Quarter: 2016Q1

REPORT INFORMATION
  Report Type: Spontaneous
  Country: US (occurrence: US)
  Receive Date: 20160216
  Receipt Date: 20160216
  Transmission Date: 20160526
  Serious: Yes (Hospitalization, Other)
  Sender: FDA-Public Use
  Company Number: US-ROCHE-1709606

PATIENT
  Sex: Male

DRUGS (4)
  1. VALCYTE [Suspect]
     Active Substance: VALGANCICLOVIR HYDROCHLORIDE
     Indication: MYELODYSPLASTIC SYNDROME
  2. LOVENOX [Concomitant]
     Active Substance: ENOXAPARIN SODIUM
     Route: 065
  3. PREDNISONE. [Concomitant]
     Active Substance: PREDNISONE
  4. VALCYTE [Suspect]
     Active Substance: VALGANCICLOVIR HYDROCHLORIDE
     Indication: APLASTIC ANAEMIA
     Route: 042
     Dates: start: 2013

REACTIONS (14)
  - Pigmentation disorder [Not Recovered/Not Resolved]
  - Skin discolouration [Unknown]
  - Pneumonia [Unknown]
  - Bilirubin conjugated increased [Unknown]
  - Thrombosis [Unknown]
  - Musculoskeletal stiffness [Not Recovered/Not Resolved]
  - Local swelling [Unknown]
  - Cytomegalovirus test positive [Unknown]
  - Aspiration [Unknown]
  - Anogenital warts [Not Recovered/Not Resolved]
  - Enterococcal infection [Unknown]
  - Graft versus host disease [Unknown]
  - Bacterial infection [Unknown]
  - Dysphagia [Not Recovered/Not Resolved]

NARRATIVE: CASE EVENT DATE: 201303
